FAERS Safety Report 7280120-7 (Version None)
Quarter: 2011Q1

REPORT INFORMATION
  Report Type: 
  Country: None (occurrence: None)
  Receive Date: 20110208
  Receipt Date: 20110208
  Transmission Date: 20110831
  Serious: Yes (Hospitalization)
  Sender: FDA-Public Use
  Company Number: US-ELI_LILLY_AND_COMPANY-US201005004441

PATIENT
  Sex: Female

DRUGS (10)
  1. LOVASTATIN [Concomitant]
  2. CALCIUM [Concomitant]
  3. FORTEO [Suspect]
     Indication: OSTEOPOROSIS
     Dosage: 20 UG, DAILY (1/D)
     Dates: start: 20100111
  4. MOBIC [Concomitant]
  5. SYNTHROID [Concomitant]
  6. ASPIRIN [Concomitant]
  7. CYMBALTA [Concomitant]
  8. CARVEDILOL [Concomitant]
  9. RAMIPRIL [Concomitant]
  10. TRAMADOL HCL [Concomitant]

REACTIONS (5)
  - MUSCULOSKELETAL PAIN [None]
  - PAIN IN EXTREMITY [None]
  - INFECTION [None]
  - HOSPITALISATION [None]
  - NERVE COMPRESSION [None]
